FAERS Safety Report 24588899 (Version 1)
Quarter: 2024Q4

REPORT INFORMATION
  Report Type: Spontaneous
  Country: US (occurrence: None)
  Receive Date: 20241106
  Receipt Date: 20241106
  Transmission Date: 20250115
  Serious: Yes (Other)
  Sender: Public
  Company Number: None

PATIENT
  Age: 32 Year
  Sex: Female
  Weight: 108.4 kg

DRUGS (2)
  1. CARBOPROST [Suspect]
     Active Substance: CARBOPROST
     Indication: Post procedural haemorrhage
     Dosage: OTHER FREQUENCY : ONCE;?
     Route: 030
     Dates: start: 20241031
  2. CARBOPROST [Suspect]
     Active Substance: CARBOPROST
     Indication: Caesarean section

REACTIONS (4)
  - Injection site rash [None]
  - Injection site bruising [None]
  - Injection site erythema [None]
  - Rash maculo-papular [None]

NARRATIVE: CASE EVENT DATE: 20241031
